FAERS Safety Report 7699743-6 (Version None)
Quarter: 2011Q3

REPORT INFORMATION
  Report Type: 
  Country: None (occurrence: None)
  Receive Date: 20110822
  Receipt Date: 20110812
  Transmission Date: 20111222
  Serious: Yes (Other)
  Sender: FDA-Public Use
  Company Number: US-BIOGENIDEC-2011BI030705

PATIENT
  Age: 37 Year
  Sex: Female

DRUGS (10)
  1. TYSABRI [Suspect]
     Indication: MULTIPLE SCLEROSIS
     Route: 042
     Dates: start: 20081219, end: 20090318
  2. VITAMIN D [Concomitant]
  3. SEROQUEL [Concomitant]
  4. TYSABRI [Suspect]
     Route: 042
     Dates: start: 20090922, end: 20110718
  5. CELEXA [Concomitant]
     Dates: start: 20110707
  6. AMBIEN [Concomitant]
  7. EFFEXOR XR [Concomitant]
     Dates: end: 20110101
  8. PROVIGIL [Concomitant]
  9. AMPYRA [Concomitant]
     Indication: GAIT DISTURBANCE
     Route: 048
     Dates: start: 20100101
  10. KLONOPIN [Concomitant]

REACTIONS (1)
  - HEPATIC ENZYME INCREASED [None]
